FAERS Safety Report 9744576 (Version 2)
Quarter: 2013Q4

REPORT INFORMATION
  Report Type: Spontaneous
  Country: US (occurrence: US)
  Receive Date: 20131210
  Receipt Date: 20131210
  Transmission Date: 20140711
  Serious: Yes (Other)
  Sender: FDA-Public Use
  Company Number: US-ACORDA-ACO_38420_2013

PATIENT
  Age: 51 Year
  Sex: Female
  Weight: 47.62 kg

DRUGS (8)
  1. AMPYRA [Suspect]
     Indication: GAIT DISTURBANCE
     Dosage: 10 MG, Q 12 HRS
     Route: 048
     Dates: start: 2010
  2. AMPYRA [Suspect]
     Dosage: 10 MG, Q 12H
     Route: 048
     Dates: start: 20120217
  3. KLONOPIN [Concomitant]
     Indication: ANXIETY
     Dosage: 3 MG, QHS
     Dates: start: 2009
  4. KLONOPIN [Concomitant]
     Indication: MUSCLE SPASTICITY
  5. ZANAFLEX [Concomitant]
     Indication: MUSCLE SPASMS
     Dosage: 4 MG, TID
     Route: 048
     Dates: start: 2009
  6. OXYBUTYNIN [Concomitant]
     Indication: NEUROGENIC BLADDER
     Dosage: 5 MG, BID
     Route: 048
     Dates: start: 2009
  7. TYSABRI [Concomitant]
     Indication: MULTIPLE SCLEROSIS
     Dosage: UNK
  8. TYSABRI [Concomitant]
     Dosage: 300 MG, MONTHLY
     Route: 042

REACTIONS (5)
  - Central nervous system lesion [Unknown]
  - Upper limb fracture [Not Recovered/Not Resolved]
  - Fall [Not Recovered/Not Resolved]
  - Balance disorder [Not Recovered/Not Resolved]
  - Drug ineffective [Unknown]
